FAERS Safety Report 5102262-4 (Version None)
Quarter: 2006Q3

REPORT INFORMATION
  Report Type: 
  Country: None (occurrence: None)
  Receive Date: 20060912
  Receipt Date: 20030620
  Transmission Date: 20061208
  Serious: Yes (Hospitalization, Other)
  Sender: FDA-Public Use
  Company Number: JP-BAYER-200311832GDS

PATIENT
  Age: 68 Year
  Sex: Female

DRUGS (12)
  1. TOWARAT L [Suspect]
     Indication: DRUG USE FOR UNKNOWN INDICATION
     Route: 048
     Dates: start: 19970401, end: 20020801
  2. LITIOMAL [Concomitant]
     Indication: MENTAL DISORDER
     Route: 048
     Dates: start: 19970401, end: 19991101
  3. CARDENALIN [Concomitant]
     Route: 065
     Dates: start: 19970401
  4. RENIVACE [Concomitant]
     Route: 065
     Dates: start: 20010101
  5. KESELAN [Concomitant]
     Indication: MENTAL DISORDER
     Route: 048
     Dates: start: 19970401
  6. CONTOMIN [Concomitant]
     Indication: MENTAL DISORDER
     Route: 048
     Dates: start: 20020201
  7. TASMOLIN [Concomitant]
     Indication: MENTAL DISORDER
     Route: 048
     Dates: start: 19970401
  8. SUNNYASE G GRAN [Concomitant]
     Indication: DYSPEPSIA
     Route: 065
     Dates: start: 19970401
  9. AMOBAN [Concomitant]
     Indication: MENTAL DISORDER
     Route: 048
     Dates: start: 20001101
  10. BENZALIN [Concomitant]
     Indication: MENTAL DISORDER
     Route: 048
     Dates: start: 20000601
  11. PURSENNID [Concomitant]
     Indication: CONSTIPATION
     Route: 048
     Dates: start: 20000101
  12. FRANDOLTAPE-S [Concomitant]
     Indication: CARDIAC DISORDER

REACTIONS (8)
  - GRANULOMA [None]
  - HYPERKERATOSIS [None]
  - LICHEN PLANUS [None]
  - LICHENOID KERATOSIS [None]
  - LIP AND/OR ORAL CAVITY CANCER [None]
  - PSORIASIS [None]
  - SCHIZOPHRENIA [None]
  - SQUAMOUS CELL CARCINOMA [None]
